FAERS Safety Report 8173837-3 (Version None)
Quarter: 2012Q1

REPORT INFORMATION
  Report Type: 
  Country: None (occurrence: None)
  Receive Date: 20120229
  Receipt Date: 20120220
  Transmission Date: 20120608
  Serious: Yes (Hospitalization)
  Sender: FDA-Public Use
  Company Number: CA-ELI_LILLY_AND_COMPANY-CA201202006269

PATIENT
  Age: 82 Year
  Sex: Female

DRUGS (6)
  1. ELAVIL [Concomitant]
  2. VENLAFAXINE [Concomitant]
  3. TYLENOL                                 /SCH/ [Concomitant]
  4. NITRAZEPAM [Concomitant]
  5. FORTEO [Suspect]
     Indication: OSTEOPOROSIS
     Dosage: 20 UG, QD
     Route: 058
     Dates: start: 20120104
  6. SYNTHROID [Concomitant]

REACTIONS (4)
  - FALL [None]
  - CONSTIPATION [None]
  - ABDOMINAL PAIN [None]
  - SPINAL COMPRESSION FRACTURE [None]
